FAERS Safety Report 7077151-9 (Version None)
Quarter: 2010Q4

REPORT INFORMATION
  Report Type: 
  Country: None (occurrence: None)
  Receive Date: 20101101
  Receipt Date: 20101028
  Transmission Date: 20110411
  Serious: Yes (Death, Hospitalization)
  Sender: FDA-Public Use
  Company Number: A0889405A

PATIENT
  Age: 90 Year
  Sex: Male

DRUGS (15)
  1. FLOVENT [Suspect]
     Dosage: 2PUFF PER DAY
     Route: 055
  2. SEREVENT [Suspect]
     Dosage: 2PUFF PER DAY
     Route: 055
  3. VENTOLIN [Suspect]
     Route: 055
  4. CARVEDILOL [Suspect]
     Route: 065
  5. DIGOXIN [Suspect]
     Route: 065
  6. SPIRONOLACTONE [Concomitant]
  7. BUMETANIDE [Concomitant]
  8. LEVOTHYROXINE [Concomitant]
  9. CEPHALEXIN [Concomitant]
  10. OMEPRAZOLE [Concomitant]
  11. OXYCODONE [Concomitant]
  12. LORAZEPAM [Concomitant]
  13. FLOMAX [Concomitant]
  14. LISINOPRIL [Concomitant]
  15. WARFARIN [Concomitant]

REACTIONS (2)
  - CARDIAC DISORDER [None]
  - CARDIAC VALVE DISEASE [None]
